FAERS Safety Report 24055294 (Version 3)
Quarter: 2024Q3

REPORT INFORMATION
  Report Type: Spontaneous
  Country: US (occurrence: US)
  Receive Date: 20240705
  Receipt Date: 20240906
  Transmission Date: 20241016
  Serious: Yes (Other)
  Sender: DOMPE FARMACEUTICI
  Company Number: US-FARMAPROD-202402-0625

PATIENT
  Age: 75 Year
  Sex: Female

DRUGS (29)
  1. OXERVATE [Suspect]
     Active Substance: CENEGERMIN-BKBJ
     Indication: Neurotrophic keratopathy
     Route: 047
     Dates: start: 20240219, end: 202404
  2. OXERVATE [Suspect]
     Active Substance: CENEGERMIN-BKBJ
  3. OXERVATE [Suspect]
     Active Substance: CENEGERMIN-BKBJ
  4. OXERVATE [Suspect]
     Active Substance: CENEGERMIN-BKBJ
  5. EYLEA [Concomitant]
     Active Substance: AFLIBERCEPT
     Dosage: 2 MG / 0.5 ML
  6. VICTOZA [Concomitant]
     Active Substance: LIRAGLUTIDE
     Dosage: 3-PAK 0.6 MG/0.1 PEN INJECTOR
  7. LYRICA [Concomitant]
     Active Substance: PREGABALIN
  8. ZZZQUIL NIGHTTIME SLEEP-AID [Concomitant]
     Active Substance: DIPHENHYDRAMINE HYDROCHLORIDE
  9. ASPIRIN [Concomitant]
     Active Substance: ASPIRIN
  10. ZANTAC-360 [Concomitant]
  11. VITAMIN D2 [Concomitant]
     Active Substance: ERGOCALCIFEROL
  12. TRAZODONE HCL [Concomitant]
     Active Substance: TRAZODONE HYDROCHLORIDE
  13. SYNTHROID [Concomitant]
     Active Substance: LEVOTHYROXINE SODIUM
  14. ROSUVASTATIN CALCIUM [Concomitant]
     Active Substance: ROSUVASTATIN CALCIUM
  15. MAGNESIUM [Concomitant]
     Active Substance: MAGNESIUM
  16. LANTUS [Concomitant]
     Active Substance: INSULIN GLARGINE
     Dosage: 100 IU / ML VIAL
  17. JARDIANCE [Concomitant]
     Active Substance: EMPAGLIFLOZIN
  18. ECOTRIN [Concomitant]
     Active Substance: ASPIRIN
  19. CALCIUM [Concomitant]
     Active Substance: CALCIUM
     Dosage: 500(1250)
  20. POTASSIUM [Concomitant]
     Active Substance: POTASSIUM
     Dosage: 595 (99) MG
  21. PIOGLITAZONE [Concomitant]
     Active Substance: PIOGLITAZONE
  22. MOTRIN IB [Concomitant]
     Active Substance: IBUPROFEN
  23. METFORMIN HYDROCHLORIDE [Concomitant]
     Active Substance: METFORMIN HYDROCHLORIDE
  24. MELATONIN [Concomitant]
     Active Substance: MELATONIN
  25. NEXIUM [Concomitant]
     Active Substance: ESOMEPRAZOLE MAGNESIUM
  26. VITAMIN C [Concomitant]
     Active Substance: ASCORBIC ACID
  27. SYSTANE GEL [Concomitant]
  28. LATANOPROST [Concomitant]
     Active Substance: LATANOPROST
  29. SYSTANE COMPLETE PF [Concomitant]
     Active Substance: PROPYLENE GLYCOL

REACTIONS (8)
  - Vascular graft [Unknown]
  - Chest pain [Not Recovered/Not Resolved]
  - Visual acuity reduced [Unknown]
  - Eye pain [Unknown]
  - Ocular discomfort [Not Recovered/Not Resolved]
  - Device use issue [Unknown]
  - Product administration error [Unknown]
  - Product dose omission issue [Not Recovered/Not Resolved]

NARRATIVE: CASE EVENT DATE: 20240315
